FAERS Safety Report 5191294-6 (Version None)
Quarter: 2006Q4

REPORT INFORMATION
  Report Type: 
  Country: None (occurrence: None)
  Receive Date: 20061218
  Receipt Date: 20061206
  Transmission Date: 20070319
  Serious: Yes (Disabling)
  Sender: FDA-Public Use
  Company Number: 150711ISR

PATIENT
  Age: 65 Year
  Sex: Female

DRUGS (1)
  1. TRAZODONE HCL [Suspect]
     Indication: INSOMNIA
     Dosage: 150 MG (150 MG, 1 IN 1 D) ORAL
     Route: 048
     Dates: start: 20061017, end: 20061020

REACTIONS (4)
  - FALL [None]
  - HEAD INJURY [None]
  - HYPERSOMNIA [None]
  - SOPOR [None]
